FAERS Safety Report 23672320 (Version 5)
Quarter: 2024Q2

REPORT INFORMATION
  Report Type: Report from Study
  Country: DE (occurrence: DE)
  Receive Date: 20240326
  Receipt Date: 20240514
  Transmission Date: 20240716
  Serious: Yes (Hospitalization, Other)
  Sender: FDA-Public Use
  Company Number: DE-ABBVIE-5691674

PATIENT
  Age: 42 Year
  Sex: Male

DRUGS (2)
  1. CARBIDOPA\LEVODOPA [Suspect]
     Active Substance: CARBIDOPA\LEVODOPA
     Indication: Parkinson^s disease
     Dosage: MD: 3.0ML; CRD: 2.0 ML/H; ED: 0.5 ML
     Route: 050
     Dates: start: 20191011
  2. CARBIDOPA\LEVODOPA [Suspect]
     Active Substance: CARBIDOPA\LEVODOPA

REACTIONS (7)
  - Medical induction of coma [Unknown]
  - Parkinson^s disease [Unknown]
  - Urinary incontinence [Unknown]
  - Chills [Unknown]
  - Akinesia [Not Recovered/Not Resolved]
  - Tracheostomy [Unknown]
  - Pyrexia [Unknown]

NARRATIVE: CASE EVENT DATE: 20240315
